FAERS Safety Report 8048745-9 (Version None)
Quarter: 2012Q1

REPORT INFORMATION
  Report Type: 
  Country: None (occurrence: None)
  Receive Date: 20120110
  Receipt Date: 20120103
  Transmission Date: 20120608
  Serious: Yes (Hospitalization, Other)
  Sender: FDA-Public Use
  Company Number: AUR-APL-2012-00178

PATIENT
  Age: 52 Year
  Sex: Male

DRUGS (5)
  1. MIRTAZAPINE [Suspect]
     Indication: SUICIDE ATTEMPT
     Dosage: (180 MG, TOTAL), ORAL
     Route: 048
     Dates: start: 20111221, end: 20111221
  2. ZOLOFT [Suspect]
     Indication: SUICIDE ATTEMPT
     Dosage: ( 6 DOSAGE FORMS, TOTAL), ORAL
     Route: 048
     Dates: start: 20111221, end: 20111221
  3. MICARDIS [Concomitant]
  4. NEXIUM [Concomitant]
  5. CLONAZEPAM [Suspect]
     Indication: SUICIDE ATTEMPT
     Dosage: (1 DOSAGE FORMS, TOTAL), ORAL
     Route: 048
     Dates: start: 20111221, end: 20111221

REACTIONS (3)
  - DRUG ABUSE [None]
  - SOMNOLENCE [None]
  - SUICIDE ATTEMPT [None]
